FAERS Safety Report 10431322 (Version 1)
Quarter: 2014Q3

REPORT INFORMATION
  Report Type: Spontaneous
  Country: US (occurrence: None)
  Receive Date: 20140815
  Receipt Date: 20140815
  Transmission Date: 20150326
  Serious: Yes (Hospitalization)
  Sender: FDA-Public Use
  Company Number: US-2014-10981

PATIENT
  Age: 28 Year
  Sex: Male
  Weight: 96.1 kg

DRUGS (6)
  1. ISONIAZIDE [Concomitant]
     Active Substance: ISONIAZID
  2. ABILIFY [Concomitant]
     Active Substance: ARIPIPRAZOLE
  3. ABILIFY MAINTENA [Suspect]
     Active Substance: ARIPIPRAZOLE
     Indication: SCHIZOPHRENIA
     Route: 030
  4. ABILIFY MAINTENA [Suspect]
     Active Substance: ARIPIPRAZOLE
     Indication: PSYCHOTIC DISORDER
     Route: 030
  5. RISPERIDONE. [Concomitant]
     Active Substance: RISPERIDONE
  6. ABILIFY MAINTENA [Suspect]
     Active Substance: ARIPIPRAZOLE
     Indication: KETOACIDOSIS
     Route: 030

REACTIONS (6)
  - Ketoacidosis [None]
  - Diabetes mellitus [None]
  - Blood glucose increased [None]
  - Depressive symptom [None]
  - Hallucination, visual [None]
  - Social avoidant behaviour [None]

NARRATIVE: CASE EVENT DATE: 201402
